FAERS Safety Report 16289821 (Version 2)
Quarter: 2019Q2

REPORT INFORMATION
  Report Type: Spontaneous
  Country: IT (occurrence: IT)
  Receive Date: 20190509
  Receipt Date: 20190610
  Transmission Date: 20190711
  Serious: Yes (Hospitalization)
  Sender: FDA-Public Use
  Company Number: PHHY2019IT104166

PATIENT

DRUGS (6)
  1. CLEXANE [Suspect]
     Active Substance: ENOXAPARIN SODIUM
     Indication: ANTICOAGULANT THERAPY
     Dosage: 04 DF, UNK
     Route: 058
     Dates: start: 20190101
  2. DILATREND [Concomitant]
     Active Substance: CARVEDILOL
     Indication: PRODUCT USED FOR UNKNOWN INDICATION
     Route: 065
  3. INDOXEN [Suspect]
     Active Substance: INDOMETHACIN
     Indication: ARTHRITIS
     Dosage: 50 MG, QD
     Route: 048
     Dates: start: 20190406, end: 20190425
  4. DELTACORTENE [Suspect]
     Active Substance: PREDNISONE
     Indication: ARTHRITIS
     Dosage: 500 MG, QD
     Route: 048
     Dates: start: 20190406, end: 20190425
  5. OLANZAPINE. [Suspect]
     Active Substance: OLANZAPINE
     Indication: SCHIZOPHRENIA
     Dosage: 5 MG, QD
     Route: 048
     Dates: start: 20160101, end: 20190405
  6. DILATREND [Concomitant]
     Active Substance: CARVEDILOL

REACTIONS (3)
  - Melaena [Recovering/Resolving]
  - Gamma-glutamyltransferase increased [Recovering/Resolving]
  - Anaemia [Recovering/Resolving]

NARRATIVE: CASE EVENT DATE: 20190426
